FAERS Safety Report 7582936-6 (Version None)
Quarter: 2011Q2

REPORT INFORMATION
  Report Type: 
  Country: None (occurrence: None)
  Receive Date: 20110630
  Receipt Date: 20090130
  Transmission Date: 20111010
  Serious: Yes (Death, Hospitalization, Other)
  Sender: FDA-Public Use
  Company Number: US-BAYER-200911635NA

PATIENT
  Age: 78 Year
  Sex: Male
  Weight: 100 kg

DRUGS (18)
  1. ACETYLSALICYLIC ACID SRT [Concomitant]
     Dosage: 81 MG, QD
     Route: 048
  2. INSULIN [Concomitant]
     Dosage: 20 UNITS
     Route: 042
     Dates: start: 20050427, end: 20050427
  3. MIDAZOLAM HCL [Concomitant]
  4. CEFAZOLIN [Concomitant]
     Dosage: 200 MG
     Route: 042
  5. SODIUM BICARBONATE [Concomitant]
     Dosage: 50 ML
     Route: 042
     Dates: start: 20050427, end: 20050427
  6. ATENOLOL [Concomitant]
     Dosage: 50 MG, QD
     Route: 048
  7. FENTANYL [Concomitant]
     Dosage: 20 MG
     Route: 042
     Dates: start: 20050427, end: 20050427
  8. PHENYLEPHRINE HCL [Concomitant]
     Dosage: 2.9 MG
     Route: 042
     Dates: start: 20050427, end: 20050427
  9. TRASYLOL [Suspect]
     Indication: PRODUCT USED FOR UNKNOWN INDICATION
     Dosage: 1 ML INITIAL TEST DOSE
     Route: 042
     Dates: start: 20050427, end: 20050427
  10. NORVASC [Concomitant]
     Dosage: 5 MG, QD
     Route: 048
     Dates: start: 20050421
  11. TERAZOSIN HCL [Concomitant]
     Dosage: 1 MG, QD
     Route: 048
  12. ACYCLOVIR [Concomitant]
  13. TRASYLOL [Suspect]
     Indication: CORONARY REVASCULARISATION
     Dosage: 100 ML PRIME (300 ML TOTAL GIVEN)
     Route: 042
     Dates: start: 20050427, end: 20050427
  14. ZOCOR [Concomitant]
     Dosage: 20 MG, QD
     Route: 048
  15. POTASSIUM CHLORIDE [Concomitant]
     Dosage: 120CC
     Route: 042
     Dates: start: 20050427, end: 20050427
  16. HYDROCHLOROTHIAZIDE [Concomitant]
     Dosage: 25 MG, QD
     Route: 048
  17. ZOFRAN [Concomitant]
  18. HEPARIN [Concomitant]
     Dosage: 42,000 UNITS
     Route: 042
     Dates: start: 20050427, end: 20050427

REACTIONS (10)
  - STRESS [None]
  - PAIN [None]
  - RENAL FAILURE [None]
  - DEATH [None]
  - FEAR [None]
  - RENAL IMPAIRMENT [None]
  - EMOTIONAL DISTRESS [None]
  - ANXIETY [None]
  - UNEVALUABLE EVENT [None]
  - MULTI-ORGAN FAILURE [None]
